FAERS Safety Report 4636147-4 (Version None)
Quarter: 2005Q2

REPORT INFORMATION
  Report Type: 
  Country: None (occurrence: None)
  Receive Date: 20050414
  Receipt Date: 20050414
  Transmission Date: 20051028
  Serious: Yes (Life-Threatening, Other)
  Sender: FDA-Public Use
  Company Number: None

PATIENT
  Age: 18 Year
  Sex: Female

DRUGS (3)
  1. CITALOPRAM 60 MG [Suspect]
     Indication: MAJOR DEPRESSION
     Dosage: 60 MG DAILY
  2. CITALOPRAM 60 MG [Suspect]
     Indication: OBSESSIVE-COMPULSIVE DISORDER
     Dosage: 60 MG DAILY
  3. CITALOPRAM 60 MG [Suspect]
     Indication: SOCIAL PHOBIA
     Dosage: 60 MG DAILY

REACTIONS (7)
  - ANXIETY [None]
  - CONDITION AGGRAVATED [None]
  - DEPRESSION [None]
  - DRUG EFFECT DECREASED [None]
  - EDUCATIONAL PROBLEM [None]
  - PHARMACEUTICAL PRODUCT COMPLAINT [None]
  - SUICIDAL IDEATION [None]
